FAERS Safety Report 24553980 (Version 2)
Quarter: 2024Q4

REPORT INFORMATION
  Report Type: Spontaneous
  Country: US (occurrence: US)
  Receive Date: 20241028
  Receipt Date: 20241210
  Transmission Date: 20250114
  Serious: Yes (Other)
  Sender: AMGEN
  Company Number: US-AMGEN-USASP2024208770

PATIENT
  Age: 56 Year
  Sex: Male

DRUGS (1)
  1. TEPEZZA [Suspect]
     Active Substance: TEPROTUMUMAB-TRBW
     Indication: Endocrine ophthalmopathy
     Dosage: UNK, FIRST ROUND
     Route: 065
     Dates: start: 2023

REACTIONS (1)
  - Endocrine ophthalmopathy [Unknown]

NARRATIVE: CASE EVENT DATE: 20240901
